FAERS Safety Report 7656850-1 (Version None)
Quarter: 2011Q3

REPORT INFORMATION
  Report Type: 
  Country: None (occurrence: None)
  Receive Date: 20110804
  Receipt Date: 20110729
  Transmission Date: 20111222
  Serious: Yes (Hospitalization)
  Sender: FDA-Public Use
  Company Number: US-GILEAD-2011-0041582

PATIENT
  Sex: Female

DRUGS (5)
  1. LETAIRIS [Suspect]
     Indication: LUNG DISORDER
  2. LETAIRIS [Suspect]
     Indication: INTERSTITIAL LUNG DISEASE
  3. LETAIRIS [Suspect]
     Indication: PULMONARY HYPERTENSION
     Route: 048
     Dates: start: 20100504
  4. LETAIRIS [Suspect]
     Indication: RHEUMATOID ARTHRITIS
  5. LETAIRIS [Suspect]
     Indication: RESPIRATORY FAILURE

REACTIONS (3)
  - FALL [None]
  - JOINT INJURY [None]
  - LOWER LIMB FRACTURE [None]
